FAERS Safety Report 21946802 (Version 7)
Quarter: 2024Q4

REPORT INFORMATION
  Report Type: Spontaneous
  Country: JP (occurrence: JP)
  Receive Date: 20230202
  Receipt Date: 20241218
  Transmission Date: 20250115
  Serious: Yes (Life-Threatening, Hospitalization, Other)
  Sender: BRISTOL-MYERS SQUIBB COMPANY
  Company Number: JP-ONO-2023JP002502

PATIENT
  Age: 61 Year
  Sex: Male
  Weight: 54 kg

DRUGS (1)
  1. OPDIVO [Suspect]
     Active Substance: NIVOLUMAB
     Indication: Malignant melanoma
     Dosage: UNK
     Route: 041
     Dates: start: 20220711, end: 20221226

REACTIONS (5)
  - Fulminant type 1 diabetes mellitus [Recovered/Resolved with Sequelae]
  - Thyroiditis [Recovering/Resolving]
  - Blood creatine phosphokinase increased [Recovered/Resolved]
  - Secondary adrenocortical insufficiency [Recovered/Resolved with Sequelae]
  - Immune-mediated hypophysitis [Unknown]

NARRATIVE: CASE EVENT DATE: 20221226
